FAERS Safety Report 8380056-4 (Version None)
Quarter: 2012Q2

REPORT INFORMATION
  Report Type: 
  Country: None (occurrence: None)
  Receive Date: 20120523
  Receipt Date: 20120514
  Transmission Date: 20120825
  Serious: Yes (Hospitalization, Congenital Anomaly)
  Sender: FDA-Public Use
  Company Number: US-GLAXOSMITHKLINE-A0950439A

PATIENT
  Sex: Female

DRUGS (8)
  1. ZOFRAN [Concomitant]
     Dates: start: 20050401
  2. PAXIL CR [Suspect]
     Indication: ANXIETY
     Dosage: 37.5MG PER DAY
     Route: 064
     Dates: start: 20031202, end: 20050301
  3. VALTREX [Concomitant]
     Dates: start: 20050901
  4. ADVAIR DISKUS 100/50 [Concomitant]
     Dates: start: 20050901
  5. BUSPIRONE HCL [Concomitant]
  6. METOCLOPRAMIDE [Concomitant]
  7. PROMETHAZINE [Concomitant]
  8. OXYCODONE HCL AND ACETAMINOPHEN [Concomitant]
     Dates: start: 20050901

REACTIONS (3)
  - TALIPES [None]
  - CONGENITAL EYE DISORDER [None]
  - FOETAL EXPOSURE DURING PREGNANCY [None]
